FAERS Safety Report 7055553-4 (Version None)
Quarter: 2010Q4

REPORT INFORMATION
  Report Type: 
  Country: None (occurrence: None)
  Receive Date: 20101021
  Receipt Date: 20101007
  Transmission Date: 20110411
  Serious: Yes (Hospitalization, Other)
  Sender: FDA-Public Use
  Company Number: PHHY2010MX67683

PATIENT
  Age: 85 Year
  Sex: Female

DRUGS (1)
  1. DIOVAN HCT [Suspect]
     Indication: HYPERTENSION
     Dosage: 80/12.5 MG (1 TABLET DAILY)
     Route: 048
     Dates: start: 20000101

REACTIONS (4)
  - CAST APPLICATION [None]
  - FALL [None]
  - FEMUR FRACTURE [None]
  - INTERNAL FIXATION OF FRACTURE [None]
